FAERS Safety Report 9695225 (Version 1)
Quarter: 2013Q4

REPORT INFORMATION
  Report Type: Spontaneous
  Country: US (occurrence: US)
  Receive Date: 20131119
  Receipt Date: 20131119
  Transmission Date: 20140711
  Serious: Yes (Hospitalization)
  Sender: FDA-Public Use
  Company Number: US-BAYER-2013-139510

PATIENT
  Age: 27 Year
  Sex: Female
  Weight: 78 kg

DRUGS (6)
  1. YAZ [Suspect]
     Dosage: UNK
     Route: 048
  2. HYDROCODONE W/ACETAMINOPHEN [Concomitant]
     Dosage: 5-500 MG, UNK
  3. OXYCODONE/APAP [Concomitant]
     Dosage: 5-325 MG, UNK
  4. SENNA [Concomitant]
     Dosage: UNK
  5. FONDAPARINUX [Concomitant]
     Dosage: UNK
  6. PERCOCET [Concomitant]
     Dosage: UNK

REACTIONS (4)
  - Deep vein thrombosis [None]
  - Pelvic venous thrombosis [None]
  - Vena cava thrombosis [None]
  - Deep vein thrombosis [None]
